FAERS Safety Report 5191250-8 (Version None)
Quarter: 2006Q4

REPORT INFORMATION
  Report Type: 
  Country: None (occurrence: None)
  Receive Date: 20061220
  Receipt Date: 20061220
  Transmission Date: 20070319
  Serious: Yes (Hospitalization)
  Sender: FDA-Public Use
  Company Number: None

PATIENT
  Sex: Female
  Weight: 101 kg

DRUGS (19)
  1. COMBIVIR [Suspect]
     Indication: HIV INFECTION
     Dosage: 1 TABLET BID PO ^FOR YEARS^
     Route: 048
  2. CEFDINIR [Concomitant]
  3. INDINIVIR SULFATE [Concomitant]
  4. BUMETANIDE [Concomitant]
  5. DILTIAZEM HCL [Concomitant]
  6. K-DUR 10 [Concomitant]
  7. ALBUTEROL [Concomitant]
  8. CARVEDILOL [Concomitant]
  9. FUROSEMIDE [Concomitant]
  10. TEMAZEPAM [Concomitant]
  11. OLANZAPINE [Concomitant]
  12. FAMOTIDINE [Concomitant]
  13. ADVAIR DISKUS 100/50 [Concomitant]
  14. ISOSORBIDE DINITRATE [Concomitant]
  15. CANDESARTEN [Concomitant]
  16. LORTAB [Concomitant]
  17. CARISOPRODOL [Concomitant]
  18. HYDRALAZINE HCL [Concomitant]
  19. RAMIPRIL [Concomitant]

REACTIONS (3)
  - ANAEMIA [None]
  - CARDIAC FAILURE [None]
  - DYSPNOEA [None]
